FAERS Safety Report 5679587-7 (Version None)
Quarter: 2008Q1

REPORT INFORMATION
  Report Type: 
  Country: None (occurrence: None)
  Receive Date: 20080321
  Receipt Date: 20080312
  Transmission Date: 20080703
  Serious: No
  Sender: FDA-Public Use
  Company Number: 2008JP001066

PATIENT
  Age: 56 Year
  Sex: Female

DRUGS (3)
  1. VESICARE [Suspect]
     Indication: HYPERTONIC BLADDER
     Dosage: 5 MG, ORAL
     Route: 048
     Dates: start: 20071220, end: 20071220
  2. MUCOSTA (REBAMIPIDE) PER ORAL NOS [Concomitant]
  3. ASPIRIN PER ORAL NOS [Concomitant]

REACTIONS (3)
  - ACCOMMODATION DISORDER [None]
  - CONDITION AGGRAVATED [None]
  - DIPLOPIA [None]
